FAERS Safety Report 25524588 (Version 1)
Quarter: 2025Q3

REPORT INFORMATION
  Report Type: Spontaneous
  Country: US (occurrence: US)
  Receive Date: 20250707
  Receipt Date: 20250707
  Transmission Date: 20251020
  Serious: Yes (Hospitalization, Other)
  Sender: GILEAD
  Company Number: US-GILEAD-2025-0718816

PATIENT

DRUGS (3)
  1. TECARTUS [Suspect]
     Active Substance: BREXUCABTAGENE AUTOLEUCEL
     Indication: Product used for unknown indication
     Route: 065
     Dates: start: 20250602, end: 20250602
  2. METHYLPREDNISOLONE [Concomitant]
     Active Substance: METHYLPREDNISOLONE
     Dosage: 500 MG, BID
     Route: 042
  3. ANAKINRA [Concomitant]
     Active Substance: ANAKINRA
     Dosage: 200 MG, Q6H
     Route: 042

REACTIONS (2)
  - Immune effector cell-associated neurotoxicity syndrome [Unknown]
  - Depressed level of consciousness [Unknown]
